FAERS Safety Report 10574777 (Version 3)
Quarter: 2014Q4

REPORT INFORMATION
  Report Type: Spontaneous
  Country: US (occurrence: US)
  Receive Date: 20141110
  Receipt Date: 20141229
  Transmission Date: 20150529
  Serious: No
  Sender: FDA-Public Use
  Company Number: US-009507513-1411USA004053

PATIENT
  Sex: Female
  Weight: 68.27 kg

DRUGS (2)
  1. OXYTROL FOR WOMEN [Suspect]
     Active Substance: OXYBUTYNIN
     Dosage: 1 DF, Q4D
     Route: 062
     Dates: start: 20141007
  2. OXYTROL FOR WOMEN [Suspect]
     Active Substance: OXYBUTYNIN
     Indication: PRODUCT USED FOR UNKNOWN INDICATION
     Dosage: 1 DF, Q4D
     Route: 062
     Dates: start: 20141007

REACTIONS (5)
  - Application site pruritus [Not Recovered/Not Resolved]
  - Skin discolouration [Not Recovered/Not Resolved]
  - Product adhesion issue [Unknown]
  - Application site pain [Unknown]
  - Rash [Unknown]

NARRATIVE: CASE EVENT DATE: 2014
